FAERS Safety Report 4973004-8 (Version None)
Quarter: 2006Q2

REPORT INFORMATION
  Report Type: 
  Country: None (occurrence: None)
  Receive Date: 20060414
  Receipt Date: 20060406
  Transmission Date: 20061013
  Serious: Yes (Hospitalization)
  Sender: FDA-Public Use
  Company Number: FR-GLAXOSMITHKLINE-B0419655A

PATIENT
  Age: 80 Year
  Sex: Female

DRUGS (6)
  1. AVANDIA [Suspect]
     Dosage: 2MG PER DAY
     Route: 048
     Dates: start: 20060115, end: 20060129
  2. DAONIL [Concomitant]
     Route: 065
  3. GLUCOR [Concomitant]
     Route: 065
  4. LEVOTHYROX [Concomitant]
     Route: 065
  5. ZOCOR [Concomitant]
     Route: 065
  6. PREVISCAN [Concomitant]
     Route: 065

REACTIONS (8)
  - ANKLE FRACTURE [None]
  - CARDIAC FAILURE [None]
  - DYSPNOEA [None]
  - FALL [None]
  - HYPOKALAEMIA [None]
  - LEFT VENTRICULAR FAILURE [None]
  - MYOCARDIAL ISCHAEMIA [None]
  - PULMONARY OEDEMA [None]
